FAERS Safety Report 16870675 (Version 1)
Quarter: 2019Q3

REPORT INFORMATION
  Report Type: Spontaneous
  Country: US (occurrence: US)
  Receive Date: 20190930
  Receipt Date: 20190930
  Transmission Date: 20191005
  Serious: No
  Sender: FDA-Public Use
  Company Number: US-009507513-1909USA005803

PATIENT

DRUGS (2)
  1. VARIVAX [Suspect]
     Active Substance: VARICELLA-ZOSTER VIRUS STRAIN OKA/MERCK LIVE ANTIGEN
     Indication: PROPHYLAXIS
     Dosage: .5 MILLILITER
     Route: 030
     Dates: start: 20190910
  2. STERILE DILUENT (WATER) [Suspect]
     Active Substance: WATER
     Dosage: UNK
     Dates: start: 20190910

REACTIONS (3)
  - Product storage error [Unknown]
  - Incorrect route of product administration [Unknown]
  - No adverse event [Unknown]

NARRATIVE: CASE EVENT DATE: 20190910
